FAERS Safety Report 19410205 (Version 2)
Quarter: 2021Q2

REPORT INFORMATION
  Report Type: Report from Study
  Country: FR (occurrence: FR)
  Receive Date: 20210614
  Receipt Date: 20210617
  Transmission Date: 20210717
  Serious: Yes (Other)
  Sender: FDA-Public Use
  Company Number: FR-KYOWAKIRIN-2021BKK009776

PATIENT

DRUGS (4)
  1. ADRIGYL [Concomitant]
     Active Substance: CHOLECALCIFEROL
     Indication: RICKETS
     Dosage: 3 DROPS DAILY
     Route: 048
     Dates: start: 20210213
  2. BUROSUMAB [Suspect]
     Active Substance: BUROSUMAB
     Dosage: 20 MG EVERY 15 DAYS
     Route: 058
     Dates: start: 20210602
  3. BUROSUMAB [Suspect]
     Active Substance: BUROSUMAB
     Dosage: 10 MG
     Route: 058
     Dates: start: 20210302, end: 20210331
  4. BUROSUMAB [Suspect]
     Active Substance: BUROSUMAB
     Indication: HEREDITARY HYPOPHOSPHATAEMIC RICKETS
     Dosage: 20 MG
     Route: 058
     Dates: start: 20210331, end: 20210428

REACTIONS (1)
  - Seizure [Recovered/Resolved]

NARRATIVE: CASE EVENT DATE: 20210403
